FAERS Safety Report 10078887 (Version 2)
Quarter: 2014Q2

REPORT INFORMATION
  Report Type: Spontaneous
  Country: US (occurrence: US)
  Receive Date: 20140415
  Receipt Date: 20140512
  Transmission Date: 20141212
  Serious: Yes (Other)
  Sender: FDA-Public Use
  Company Number: US-TEVA-475586USA

PATIENT
  Age: 51 Year
  Sex: Male

DRUGS (1)
  1. COPAXONE [Suspect]
     Dates: start: 2004, end: 201402

REACTIONS (4)
  - Convulsion [Recovered/Resolved]
  - Unresponsive to stimuli [Recovered/Resolved]
  - Staring [Recovered/Resolved]
  - Drug ineffective [Unknown]
